FAERS Safety Report 4866682-5 (Version None)
Quarter: 2005Q4

REPORT INFORMATION
  Report Type: 
  Country: None (occurrence: None)
  Receive Date: 20051221
  Receipt Date: 20051208
  Transmission Date: 20060501
  Serious: Yes (Hospitalization)
  Sender: FDA-Public Use
  Company Number: 2005168344

PATIENT
  Age: 32 Year
  Sex: Male

DRUGS (2)
  1. HYDROXYZINE HCL [Suspect]
     Indication: ILL-DEFINED DISORDER
     Dosage: INTRAVENOUS
     Route: 042
  2. COCAINE (COCAINE) [Suspect]
     Indication: ILL-DEFINED DISORDER
     Dosage: INTRAVENOUS
     Route: 042

REACTIONS (5)
  - DRUG TOXICITY [None]
  - MALAISE [None]
  - PETIT MAL EPILEPSY [None]
  - TACHYCARDIA [None]
  - TREMOR [None]
